FAERS Safety Report 10708407 (Version 2)
Quarter: 2015Q1

REPORT INFORMATION
  Report Type: Spontaneous
  Country: US (occurrence: US)
  Receive Date: 20150113
  Receipt Date: 20150116
  Transmission Date: 20150721
  Serious: No
  Sender: FDA-Public Use
  Company Number: US-009507513-1412USA002025

PATIENT
  Age: 36 Year
  Sex: Female
  Weight: 72.56 kg

DRUGS (1)
  1. NEXPLANON [Suspect]
     Active Substance: ETONOGESTREL
     Indication: CONTRACEPTION
     Dosage: UNK
     Dates: start: 20141125

REACTIONS (3)
  - Pain [Not Recovered/Not Resolved]
  - Hypoaesthesia [Unknown]
  - Injection site bruising [Unknown]

NARRATIVE: CASE EVENT DATE: 2014
